FAERS Safety Report 5536667-4 (Version None)
Quarter: 2007Q4

REPORT INFORMATION
  Report Type: 
  Country: None (occurrence: None)
  Receive Date: 20071206
  Receipt Date: 20070713
  Transmission Date: 20080405
  Serious: Yes (Hospitalization)
  Sender: FDA-Public Use
  Company Number: US-AMGEN-STX229474

PATIENT
  Sex: Female
  Weight: 71.7 kg

DRUGS (3)
  1. ENBREL [Suspect]
     Indication: RHEUMATOID ARTHRITIS
     Route: 058
     Dates: start: 20061201
  2. SYNTHROID [Concomitant]
  3. PREDNISONE TAB [Concomitant]

REACTIONS (1)
  - DIVERTICULITIS [None]
